FAERS Safety Report 12476330 (Version 1)
Quarter: 2016Q2

REPORT INFORMATION
  Report Type: Spontaneous
  Country: PE (occurrence: PE)
  Receive Date: 20160617
  Receipt Date: 20160617
  Transmission Date: 20160815
  Serious: Yes (Other)
  Sender: FDA-Public Use
  Company Number: PE-PFIZER INC-2016299084

PATIENT
  Age: 77 Year
  Sex: Female

DRUGS (4)
  1. SACCHARATED IRON OXIDE [Concomitant]
     Active Substance: IRON SUCROSE
     Dosage: UNK
  2. LACTULOSA [Concomitant]
     Active Substance: LACTULOSE
     Dosage: UNK
  3. NEURONTIN [Suspect]
     Active Substance: GABAPENTIN
     Dosage: 900 MG (3 TABLETS OF 300 MG), DAILY
  4. RANITIDINE. [Concomitant]
     Active Substance: RANITIDINE
     Dosage: 300 MG, UNK

REACTIONS (2)
  - Nerve injury [Unknown]
  - Diabetes mellitus [Unknown]
